FAERS Safety Report 8947065 (Version 2)
Quarter: 2012Q4

REPORT INFORMATION
  Report Type: Report from Study
  Country: IT (occurrence: IT)
  Receive Date: 20121205
  Receipt Date: 20121213
  Transmission Date: 20130627
  Serious: Yes (Hospitalization)
  Sender: FDA-Public Use
  Company Number: IT-ROCHE-1164717

PATIENT
  Age: 68 Year
  Sex: Male
  Weight: 71 kg

DRUGS (7)
  1. VEMURAFENIB [Suspect]
     Indication: MALIGNANT MELANOMA
     Dosage: 360 mg X 2
     Route: 065
     Dates: start: 20120615, end: 20121204
  2. LEVOTYROXIN [Concomitant]
     Indication: HYPERTHYROIDISM
  3. RAMIPRIL HCT [Concomitant]
     Indication: HYPERTENSION
     Dosage: 2.5+ 12.5
     Route: 065
  4. ACETYLSALICYLIC ACID [Concomitant]
     Indication: THROMBOSIS
  5. ROSUVASTATIN [Concomitant]
  6. DOXAZOSIN [Concomitant]
     Indication: HYPERTENSION
  7. METHYLPREDNISOLONE [Concomitant]

REACTIONS (4)
  - Radiation skin injury [Not Recovered/Not Resolved]
  - Mental disorder [Unknown]
  - Eating disorder [Unknown]
  - Weight decreased [Unknown]
